FAERS Safety Report 4644671-3 (Version None)
Quarter: 2005Q2

REPORT INFORMATION
  Report Type: 
  Country: None (occurrence: None)
  Receive Date: 20050422
  Receipt Date: 20050412
  Transmission Date: 20051028
  Serious: Yes (Other)
  Sender: FDA-Public Use
  Company Number: S05-USA-00476-01

PATIENT
  Age: 75 Year
  Sex: Male

DRUGS (5)
  1. NAMENDA [Suspect]
     Dosage: 5 MG BID PO
     Route: 048
  2. NAMENDA [Suspect]
     Dosage: 5 MG QD PO
     Route: 048
  3. NAMENDA [Suspect]
     Dosage: 5 MG QD PO
     Route: 048
  4. NAMENDA [Suspect]
     Dosage: 5 MG BID PO
     Route: 048
  5. NAMENDA [Suspect]
     Dosage: 5 MG QD PO
     Route: 048

REACTIONS (2)
  - ATRIOVENTRICULAR BLOCK COMPLETE [None]
  - SYNCOPE [None]
